FAERS Safety Report 19825087 (Version 2)
Quarter: 2021Q4

REPORT INFORMATION
  Report Type: Spontaneous
  Country: US (occurrence: US)
  Receive Date: 20210914
  Receipt Date: 20211004
  Transmission Date: 20220303
  Serious: Yes (Other)
  Sender: FDA-Public Use
  Company Number: 2021A713423

PATIENT
  Sex: Male
  Weight: 52.6 kg

DRUGS (1)
  1. TAGRISSO [Suspect]
     Active Substance: OSIMERTINIB
     Indication: Large cell lung cancer stage IV
     Dosage: UNKNOWN DAILY DOSE
     Route: 048
     Dates: start: 20210812

REACTIONS (8)
  - Hypotension [Unknown]
  - Haematocrit decreased [Not Recovered/Not Resolved]
  - Red blood cell count decreased [Not Recovered/Not Resolved]
  - Haemoglobin decreased [Not Recovered/Not Resolved]
  - Fatigue [Not Recovered/Not Resolved]
  - Feeling abnormal [Not Recovered/Not Resolved]
  - Asthenia [Unknown]
  - Product use issue [Not Recovered/Not Resolved]
